FAERS Safety Report 18731932 (Version 2)
Quarter: 2022Q2

REPORT INFORMATION
  Report Type: Spontaneous
  Country: US (occurrence: US)
  Receive Date: 20210112
  Receipt Date: 20220413
  Transmission Date: 20220721
  Serious: No
  Sender: FDA-Public Use
  Company Number: US-PFIZER INC-2021015108

PATIENT
  Age: 47 Year
  Sex: Female

DRUGS (3)
  1. INLYTA [Suspect]
     Active Substance: AXITINIB
     Dosage: 1 MG, UNK
     Dates: start: 20190930, end: 20191202
  2. INLYTA [Suspect]
     Active Substance: AXITINIB
     Dosage: UNK
     Dates: start: 20201201
  3. INLYTA [Suspect]
     Active Substance: AXITINIB
     Dosage: UNK
     Dates: start: 20210107

REACTIONS (11)
  - Palmar-plantar erythrodysaesthesia syndrome [Unknown]
  - Skin irritation [Unknown]
  - Hyperaesthesia [Unknown]
  - Skin discolouration [Unknown]
  - Pain of skin [Unknown]
  - Skin fissures [Unknown]
  - Migraine [Unknown]
  - Alopecia [Unknown]
  - Fatigue [Unknown]
  - Pain in extremity [Unknown]
  - Off label use [Unknown]

NARRATIVE: CASE EVENT DATE: 20190930
